FAERS Safety Report 11989196 (Version 2)
Quarter: 2016Q1

REPORT INFORMATION
  Report Type: Spontaneous
  Country: FR (occurrence: FR)
  Receive Date: 20160202
  Receipt Date: 20160210
  Transmission Date: 20160526
  Serious: Yes (Death)
  Sender: FDA-Public Use
  Company Number: FR-TEVA-628238ISR

PATIENT
  Age: 94 Year
  Sex: Male

DRUGS (1)
  1. FUROSEMIDE 500 [Suspect]
     Active Substance: FUROSEMIDE

REACTIONS (1)
  - Death [Fatal]
